FAERS Safety Report 6937429-3 (Version None)
Quarter: 2010Q3

REPORT INFORMATION
  Report Type: 
  Country: None (occurrence: None)
  Receive Date: 20100823
  Receipt Date: 20100823
  Transmission Date: 20110219
  Serious: Yes (Other)
  Sender: FDA-Public Use
  Company Number: None

PATIENT
  Age: 50 Year
  Sex: Female
  Weight: 109.7705 kg

DRUGS (3)
  1. ABILIFY [Suspect]
     Indication: BIPOLAR DISORDER
     Dates: start: 19870101, end: 20100818
  2. HALDOL [Concomitant]
  3. CELEXA [Concomitant]

REACTIONS (2)
  - FALL [None]
  - SLEEP ATTACKS [None]
